FAERS Safety Report 15665112 (Version 1)
Quarter: 2018Q4

REPORT INFORMATION
  Report Type: Spontaneous
  Country: US (occurrence: US)
  Receive Date: 20181128
  Receipt Date: 20181128
  Transmission Date: 20190205
  Serious: Yes (Other)
  Sender: FDA-Public Use
  Company Number: None

PATIENT
  Age: 31 Year
  Sex: Female
  Weight: 72.57 kg

DRUGS (1)
  1. MIRENA [Suspect]
     Active Substance: LEVONORGESTREL
     Dates: start: 20150415, end: 20170203

REACTIONS (5)
  - Complication of device removal [None]
  - Complication of device insertion [None]
  - Embedded device [None]
  - Uterine perforation [None]
  - Adverse event [None]

NARRATIVE: CASE EVENT DATE: 20170203
